FAERS Safety Report 20659610 (Version 5)
Quarter: 2022Q4

REPORT INFORMATION
  Report Type: Other
  Country: CA (occurrence: None)
  Receive Date: 20220331
  Receipt Date: 20221130
  Transmission Date: 20230113
  Serious: Yes (Hospitalization, Other)
  Sender: FDA-Public Use
  Company Number: CA-ROCHE-3024182

PATIENT
  Age: 50 Year
  Sex: Female

DRUGS (1)
  1. OCREVUS [Suspect]
     Active Substance: OCRELIZUMAB
     Indication: Relapsing-remitting multiple sclerosis
     Dosage: 300 MG AT DAY 0 AND 14, THEN 600 MG EVERY 6 MONTHS
     Route: 042
     Dates: start: 20180502

REACTIONS (6)
  - Pulmonary embolism [Recovered/Resolved]
  - Deep vein thrombosis [Unknown]
  - Pneumonia aspiration [Not Recovered/Not Resolved]
  - Decubitus ulcer [Unknown]
  - Hypotension [Unknown]
  - Pulmonary embolism [Recovered/Resolved]

NARRATIVE: CASE EVENT DATE: 20211001
